FAERS Safety Report 7927847-9 (Version None)
Quarter: 2011Q4

REPORT INFORMATION
  Report Type: 
  Country: None (occurrence: None)
  Receive Date: 20111118
  Receipt Date: 20111118
  Transmission Date: 20120403
  Serious: Yes (Life-Threatening, Hospitalization)
  Sender: FDA-Public Use
  Company Number: None

PATIENT
  Age: 33 Year
  Sex: Female
  Weight: 65.77 kg

DRUGS (1)
  1. OMNIPOD INSULIN MANAGEMENT SYSTE [Suspect]
     Indication: TYPE 1 DIABETES MELLITUS
     Dates: start: 20090517, end: 20111015

REACTIONS (3)
  - INCORRECT DOSE ADMINISTERED [None]
  - HYPOGLYCAEMIC SEIZURE [None]
  - MEDICATION ERROR [None]
